FAERS Safety Report 16083885 (Version 2)
Quarter: 2019Q3

REPORT INFORMATION
  Report Type: Spontaneous
  Country: US (occurrence: US)
  Receive Date: 20190318
  Receipt Date: 20190920
  Transmission Date: 20191004
  Serious: No
  Sender: FDA-Public Use
  Company Number: US-MYLANLABS-2019M1018751

PATIENT
  Sex: Male
  Weight: 70 kg

DRUGS (1)
  1. LIDOCAINE PATCH [Suspect]
     Active Substance: LIDOCAINE
     Indication: ARTHRALGIA
     Dosage: UNK
     Route: 003

REACTIONS (4)
  - Product adhesion issue [Unknown]
  - Product colour issue [Unknown]
  - Product quality issue [Unknown]
  - Off label use [Not Recovered/Not Resolved]
